FAERS Safety Report 21087394 (Version 10)
Quarter: 2023Q4

REPORT INFORMATION
  Report Type: Spontaneous
  Country: US (occurrence: US)
  Receive Date: 20220715
  Receipt Date: 20231127
  Transmission Date: 20240110
  Serious: Yes (Hospitalization, Other)
  Sender: FDA-Public Use
  Company Number: US-BRISTOL-MYERS SQUIBB COMPANY-2022-069222

PATIENT
  Age: 70 Year
  Sex: Male

DRUGS (3)
  1. REVLIMID [Suspect]
     Active Substance: LENALIDOMIDE
     Indication: Plasma cell myeloma
     Dosage: QD 21 DAYS ON, 7 DAYS OFF
     Route: 048
     Dates: start: 202001
  2. ASPIRIN [Concomitant]
     Active Substance: ASPIRIN
     Indication: Product used for unknown indication
  3. CARDIZEM [Concomitant]
     Active Substance: DILTIAZEM HYDROCHLORIDE
     Indication: Product used for unknown indication

REACTIONS (16)
  - Platelet count abnormal [Unknown]
  - Pneumonia [Unknown]
  - Atrial fibrillation [Unknown]
  - Hypotension [Unknown]
  - Constipation [Unknown]
  - Nightmare [Unknown]
  - Anaemia [Unknown]
  - Gait disturbance [Unknown]
  - Asthenia [Unknown]
  - Fall [Unknown]
  - Platelet count decreased [Unknown]
  - Contusion [Unknown]
  - Nasal injury [Unknown]
  - Brain fog [Unknown]
  - Memory impairment [Unknown]
  - Back injury [Unknown]

NARRATIVE: CASE EVENT DATE: 20220629
